FAERS Safety Report 25392184 (Version 1)
Quarter: 2025Q2

REPORT INFORMATION
  Report Type: Spontaneous
  Country: US (occurrence: None)
  Receive Date: 20250603
  Receipt Date: 20250603
  Transmission Date: 20250716
  Serious: No
  Sender: INCYTE
  Company Number: US-002147023-NVSC2025US080925

PATIENT
  Age: 24 Year

DRUGS (2)
  1. JAKAFI [Suspect]
     Active Substance: RUXOLITINIB
     Indication: Acute febrile neutrophilic dermatosis
     Dosage: 5 MG, BID
     Route: 065
  2. METHOTREXATE [Concomitant]
     Active Substance: METHOTREXATE
     Indication: Colitis ulcerative
     Dosage: 12.5 MG, QD
     Route: 065

REACTIONS (1)
  - Drug effective for unapproved indication [Unknown]
